FAERS Safety Report 5972219-X (Version None)
Quarter: 2008Q4

REPORT INFORMATION
  Report Type: 
  Country: None (occurrence: None)
  Receive Date: 20081201
  Receipt Date: 20071102
  Transmission Date: 20090506
  Serious: No
  Sender: FDA-Public Use
  Company Number: US-TEVA-163966USA

PATIENT
  Sex: Male
  Weight: 81.72 kg

DRUGS (1)
  1. SALBUTAMOL SULFATE INHALATION, 0.09 MG [Suspect]
     Dosage: 2 PUFFS ON A FEW OCCASIONS IN MAY 2007
     Route: 048
     Dates: start: 20070501

REACTIONS (4)
  - HEART RATE INCREASED [None]
  - NERVOUSNESS [None]
  - PARAESTHESIA [None]
  - TREMOR [None]
